FAERS Safety Report 20653455 (Version 1)
Quarter: 2022Q1

REPORT INFORMATION
  Report Type: Spontaneous
  Country: AU (occurrence: AU)
  Receive Date: 20220330
  Receipt Date: 20220330
  Transmission Date: 20220423
  Serious: Yes (Other)
  Sender: FDA-Public Use
  Company Number: AU-BoehringerIngelheim-2022-BI-157126

PATIENT
  Age: 78 Year
  Sex: Male

DRUGS (2)
  1. STIOLTO RESPIMAT [Suspect]
     Active Substance: OLODATEROL HYDROCHLORIDE\TIOTROPIUM BROMIDE MONOHYDRATE
     Indication: Product used for unknown indication
     Dosage: NOW TAKES 2 PUFFS IN THE MORNING
     Route: 065
  2. STIOLTO RESPIMAT [Suspect]
     Active Substance: OLODATEROL HYDROCHLORIDE\TIOTROPIUM BROMIDE MONOHYDRATE
     Dosage: 1 PUFF TWICE A DAY
     Route: 065

REACTIONS (4)
  - Lung neoplasm malignant [Unknown]
  - Dyspnoea [Unknown]
  - Fatigue [Unknown]
  - Medication error [Unknown]

NARRATIVE: CASE EVENT DATE: 20220301
